FAERS Safety Report 11009758 (Version 1)
Quarter: 2015Q2

REPORT INFORMATION
  Report Type: Spontaneous
  Country: FR (occurrence: FR)
  Receive Date: 20150410
  Receipt Date: 20150410
  Transmission Date: 20150821
  Serious: Yes (Hospitalization)
  Sender: FDA-Public Use
  Company Number: FR-EMD SERONO-8019398

PATIENT
  Age: 31 Year
  Sex: Female

DRUGS (9)
  1. GONAL-F [Suspect]
     Active Substance: FOLLITROPIN
     Dates: start: 20150126
  2. GONAL-F [Suspect]
     Active Substance: FOLLITROPIN
     Dates: start: 20150124, end: 20150125
  3. CHORIONIC GONADOTROPIN [Suspect]
     Active Substance: CHORIOGONADOTROPIN ALFA
     Indication: PRODUCT USED FOR UNKNOWN INDICATION
     Route: 030
     Dates: start: 20150127, end: 20150127
  4. DECAPEPTYL [Suspect]
     Active Substance: TRIPTORELIN ACETATE
     Dosage: 1 INJECTION OF A HALF-VIAL PER DAY
     Dates: start: 20150121, end: 20150126
  5. GONAL-F [Suspect]
     Active Substance: FOLLITROPIN
     Route: 058
     Dates: start: 20150121, end: 20150122
  6. GONAL-F [Suspect]
     Active Substance: FOLLITROPIN
     Indication: PRODUCT USED FOR UNKNOWN INDICATION
     Route: 058
     Dates: start: 20150115, end: 20150118
  7. GONAL-F [Suspect]
     Active Substance: FOLLITROPIN
     Dates: start: 20150123
  8. GONAL-F [Suspect]
     Active Substance: FOLLITROPIN
     Dates: start: 20150119, end: 20150120
  9. DECAPEPTYL [Suspect]
     Active Substance: TRIPTORELIN ACETATE
     Indication: PRODUCT USED FOR UNKNOWN INDICATION
     Dosage: 1 INJECTION,?FORM OF ADMINISTRATION: POWDER AND SOLVENT FOR SOLUTION FOR INJECTION
     Route: 058
     Dates: start: 20150115, end: 20150120

REACTIONS (1)
  - Peritoneal haemorrhage [Recovering/Resolving]

NARRATIVE: CASE EVENT DATE: 20150129
